FAERS Safety Report 6763380-8 (Version None)
Quarter: 2010Q2

REPORT INFORMATION
  Report Type: 
  Country: None (occurrence: None)
  Receive Date: 20100608
  Receipt Date: 20100608
  Transmission Date: 20101027
  Serious: Yes (Hospitalization)
  Sender: FDA-Public Use
  Company Number: None

PATIENT
  Sex: Male
  Weight: 94.3482 kg

DRUGS (1)
  1. TRAMADOL HCL [Suspect]
     Indication: PAIN
     Dosage: 1 TO 2 TABLETS 4 TO 6 HOURS PO
     Route: 048
     Dates: start: 20100204, end: 20100211

REACTIONS (2)
  - DRUG INTERACTION [None]
  - MELAENA [None]
